FAERS Safety Report 20615934 (Version 1)
Quarter: 2022Q1

REPORT INFORMATION
  Report Type: Spontaneous
  Country: US (occurrence: US)
  Receive Date: 20220321
  Receipt Date: 20220321
  Transmission Date: 20220423
  Serious: No
  Sender: FDA-Public Use
  Company Number: US-SA-SAC20220315001374

PATIENT
  Age: 74 Year
  Sex: Female

DRUGS (2)
  1. SARCLISA [Suspect]
     Active Substance: ISATUXIMAB-IRFC
     Indication: Plasma cell myeloma
     Dosage: 500 MG/ML
     Route: 042
     Dates: start: 202107
  2. SARCLISA [Suspect]
     Active Substance: ISATUXIMAB-IRFC
     Dosage: INFUSE 640 MG IV ON DAYS 1 AND 15 OF A 28 DAY CYCLE
     Route: 042

REACTIONS (2)
  - Pain [Unknown]
  - Abdominal discomfort [Unknown]
